FAERS Safety Report 10088236 (Version 3)
Quarter: 2014Q3

REPORT INFORMATION
  Report Type: Report from Study
  Country: AU (occurrence: AU)
  Receive Date: 20140421
  Receipt Date: 20140722
  Transmission Date: 20150326
  Serious: Yes (Hospitalization)
  Sender: FDA-Public Use
  Company Number: AU-BIOGENIDEC-2014BI020076

PATIENT
  Age: 51 Year
  Sex: Female

DRUGS (2)
  1. TECFIDERA [Suspect]
     Active Substance: DIMETHYL FUMARATE
     Indication: MULTIPLE SCLEROSIS
     Route: 048
  2. TECFIDERA [Suspect]
     Active Substance: DIMETHYL FUMARATE
     Indication: MULTIPLE SCLEROSIS
     Route: 048
     Dates: start: 20140221

REACTIONS (13)
  - Convulsion [Unknown]
  - Tremor [Unknown]
  - Mobility decreased [Unknown]
  - Muscle spasms [Unknown]
  - Night sweats [Recovered/Resolved]
  - Urinary incontinence [Unknown]
  - Visual impairment [Unknown]
  - Muscular weakness [Unknown]
  - Micturition urgency [Unknown]
  - Middle insomnia [Unknown]
  - Feeling hot [Unknown]
  - Multiple sclerosis relapse [Unknown]
  - Fatigue [Unknown]

NARRATIVE: CASE EVENT DATE: 20140401
